FAERS Safety Report 23598497 (Version 3)
Quarter: 2024Q4

REPORT INFORMATION
  Report Type: Spontaneous
  Country: IT (occurrence: IT)
  Receive Date: 20240306
  Receipt Date: 20241018
  Transmission Date: 20250114
  Serious: Yes (Death, Other)
  Sender: AUROBINDO
  Company Number: IT-AUROBINDO-AUR-APL-2015-05652

PATIENT
  Age: 39 Year
  Sex: Male

DRUGS (8)
  1. CARBOPLATIN [Suspect]
     Active Substance: CARBOPLATIN
     Indication: Product used for unknown indication
     Dosage: UNK
     Route: 065
  2. DOCETAXEL [Suspect]
     Active Substance: DOCETAXEL
     Indication: Product used for unknown indication
     Dosage: UNK
     Route: 065
  3. GEMCITABINE [Suspect]
     Active Substance: GEMCITABINE
     Indication: Product used for unknown indication
     Dosage: UNK
     Route: 065
  4. IRINOTECAN [Suspect]
     Active Substance: IRINOTECAN
     Indication: Ewing^s sarcoma
     Dosage: 75 MG/SQM  AT DAY 2
     Route: 065
  5. IRINOTECAN [Suspect]
     Active Substance: IRINOTECAN
     Dosage: 75 MG/SQM  AT DAY 4
     Route: 042
     Dates: start: 20131016, end: 20140711
  6. ETOPOSIDE [Suspect]
     Active Substance: ETOPOSIDE
     Indication: Product used for unknown indication
     Dosage: UNK
     Route: 065
  7. YONDELIS [Suspect]
     Active Substance: TRABECTEDIN
     Indication: Ewing^s sarcoma
     Dosage: 1 MILLIGRAM/SQ. METER, CYCLICAL (1 MG/SQM, AT DAY 1)
     Route: 042
     Dates: start: 20130918, end: 20140708
  8. DEXAMETHASONE [Concomitant]
     Active Substance: DEXAMETHASONE
     Indication: Premedication
     Dosage: 20 MG/M2, UNK
     Route: 042

REACTIONS (10)
  - Hepatotoxicity [Fatal]
  - Diarrhoea [Fatal]
  - Haematotoxicity [Fatal]
  - Cerebrovascular accident [Fatal]
  - Transaminases increased [Fatal]
  - Off label use [Fatal]
  - Sudden death [Fatal]
  - Ewing^s sarcoma [Unknown]
  - Hypertransaminasaemia [Unknown]
  - Pulmonary mass [Recovered/Resolved]
